FAERS Safety Report 19046200 (Version 2)
Quarter: 2021Q2

REPORT INFORMATION
  Report Type: Other
  Country: US (occurrence: US)
  Receive Date: 20210323
  Receipt Date: 20210509
  Transmission Date: 20210717
  Serious: Yes (Other)
  Sender: FDA-Public Use
  Company Number: US-ROCHE-2790284

PATIENT
  Sex: Female

DRUGS (21)
  1. AZELASTINE. [Concomitant]
     Active Substance: AZELASTINE HYDROCHLORIDE
  2. HYDROCHLOROTHIAZIDE. [Concomitant]
     Active Substance: HYDROCHLOROTHIAZIDE
  3. MUPIROCIN. [Concomitant]
     Active Substance: MUPIROCIN
  4. SERTRALINE [Concomitant]
     Active Substance: SERTRALINE HYDROCHLORIDE
  5. NEOMYCIN. [Concomitant]
     Active Substance: NEOMYCIN
  6. SENSORCAINE [Concomitant]
     Active Substance: BUPIVACAINE HYDROCHLORIDE
  7. MYRBETRIQ [Concomitant]
     Active Substance: MIRABEGRON
  8. VITAMIN D3 [Concomitant]
     Active Substance: CHOLECALCIFEROL
  9. XELODA [Suspect]
     Active Substance: CAPECITABINE
     Indication: COLON CANCER
     Dosage: TAKE 5 TABLETS (2500MG) BY MOUTH TWICE A DAY ON DAYS 1?14 OF EACH 21 DAY CYCLE. TAKE WITH WATER, WIT
     Route: 048
  10. ASPIRIN. [Concomitant]
     Active Substance: ASPIRIN
  11. METFORMIN [Concomitant]
     Active Substance: METFORMIN HYDROCHLORIDE
  12. OMEPRAZOLE. [Concomitant]
     Active Substance: OMEPRAZOLE
  13. IBUPROFEN. [Concomitant]
     Active Substance: IBUPROFEN
  14. AMLODIPINE [Concomitant]
     Active Substance: AMLODIPINE BESYLATE
     Route: 048
  15. RECLAST [Concomitant]
     Active Substance: ZOLEDRONIC ACID
  16. HYDROCODONE [Concomitant]
     Active Substance: HYDROCODONE
  17. ROSUVASTIN [Concomitant]
     Active Substance: ROSUVASTATIN
  18. BENAZEPRIL [Concomitant]
     Active Substance: BENAZEPRIL HYDROCHLORIDE
  19. DICLOPHENAC [Concomitant]
     Active Substance: DICLOFENAC SODIUM
  20. GAVILYTE ? C [Concomitant]
     Active Substance: POLYETHYLENE GLYCOL 3350\POTASSIUM CHLORIDE\SODIUM BICARBONATE\SODIUM CHLORIDE\SODIUM SULFATE
  21. HYDROXINE [Concomitant]
     Active Substance: HYDROXYZINE HYDROCHLORIDE

REACTIONS (1)
  - Deafness [Unknown]
